FAERS Safety Report 8353422-0 (Version None)
Quarter: 2012Q2

REPORT INFORMATION
  Report Type: 
  Country: None (occurrence: None)
  Receive Date: 20120511
  Receipt Date: 20110826
  Transmission Date: 20120825
  Serious: No
  Sender: FDA-Public Use
  Company Number: US-GLAXOSMITHKLINE-A0849718A

PATIENT
  Age: 40 Year
  Sex: Female

DRUGS (3)
  1. ZOMETA [Concomitant]
  2. HERCEPTIN [Concomitant]
     Dates: start: 20100218
  3. TYKERB [Suspect]
     Indication: BREAST CANCER
     Dosage: 5TAB AT NIGHT
     Route: 048
     Dates: start: 20100303

REACTIONS (5)
  - NAUSEA [None]
  - DIARRHOEA [None]
  - PYREXIA [None]
  - ERYTHEMA [None]
  - VOMITING [None]
